FAERS Safety Report 24965438 (Version 1)
Quarter: 2025Q1

REPORT INFORMATION
  Report Type: Spontaneous
  Country: US (occurrence: US)
  Receive Date: 20250213
  Receipt Date: 20250213
  Transmission Date: 20250409
  Serious: No
  Sender: ALNYLAM PHARMACEUTICALS
  Company Number: US-ALNYLAM PHARMACEUTICALS, INC.-ALN-2025-000663

PATIENT

DRUGS (2)
  1. ONPATTRO [Suspect]
     Active Substance: PATISIRAN SODIUM
     Indication: Amyloidosis
     Dosage: UNK, Q3W (INFUSION)
     Route: 065
  2. VYNDAQEL [Suspect]
     Active Substance: TAFAMIDIS MEGLUMINE
     Indication: Amyloidosis
     Dosage: 20 MILLIGRAM, QID
     Route: 065

REACTIONS (6)
  - Cardiac pacemaker insertion [Unknown]
  - Ill-defined disorder [Unknown]
  - Dysgraphia [Unknown]
  - Motor dysfunction [Unknown]
  - Body height decreased [Unknown]
  - Dizziness [Unknown]
